FAERS Safety Report 12157675 (Version 5)
Quarter: 2025Q2

REPORT INFORMATION
  Report Type: Report from Study
  Country: US (occurrence: US)
  Receive Date: 20160308
  Receipt Date: 20250410
  Transmission Date: 20250717
  Serious: Yes (Hospitalization, Other)
  Sender: AMGEN
  Company Number: US-AMGEN-USASP2016026869

PATIENT
  Age: 40 Year
  Sex: Female

DRUGS (27)
  1. ENBREL [Suspect]
     Active Substance: ETANERCEPT
     Indication: Rheumatoid arthritis
     Dosage: 50 MILLIGRAM, QWK
     Route: 058
  2. ENBREL [Suspect]
     Active Substance: ETANERCEPT
     Dosage: 50 MILLIGRAM, QWK
     Route: 058
  3. HUMIRA [Suspect]
     Active Substance: ADALIMUMAB
     Indication: Product used for unknown indication
     Route: 065
  4. ORENCIA [Suspect]
     Active Substance: ABATACEPT
     Indication: Product used for unknown indication
     Route: 065
  5. METHOTREXATE SODIUM [Concomitant]
     Active Substance: METHOTREXATE SODIUM
     Dosage: 50 MILLIGRAM, QWK
     Route: 058
  6. CELECOXIB [Concomitant]
     Active Substance: CELECOXIB
     Dosage: 200 MILLIGRAM, BID
     Route: 048
  7. BELSOMRA [Concomitant]
     Active Substance: SUVOREXANT
     Dosage: 20 MILLIGRAM, QD
     Route: 048
  8. PANTOPRAZOLE SODIUM [Concomitant]
     Active Substance: PANTOPRAZOLE SODIUM
     Dosage: 40 MILLIGRAM, QD
     Route: 048
  9. FOLIC ACID [Concomitant]
     Active Substance: FOLIC ACID
     Dosage: 1 MILLIGRAM, TID
     Route: 048
  10. BELBUCA [Concomitant]
     Active Substance: BUPRENORPHINE HYDROCHLORIDE
     Route: 002
  11. RASUVO [Concomitant]
     Active Substance: METHOTREXATE SODIUM
     Dosage: 20 MILLIGRAM, QWK
     Route: 058
  12. FORTEO [Concomitant]
     Active Substance: TERIPARATIDE
     Dosage: UNK UNK, QD
     Route: 058
  13. OSPHENA [Concomitant]
     Active Substance: OSPEMIFENE
     Dosage: 60 MILLIGRAM, QD
     Route: 048
  14. MOVANTIK [Concomitant]
     Active Substance: NALOXEGOL OXALATE
     Dosage: 25 MILLIGRAM, QD
     Route: 048
  15. FENTANYL [Concomitant]
     Active Substance: FENTANYL
     Route: 062
  16. COMPAZINE [Concomitant]
     Active Substance: PROCHLORPERAZINE MALEATE
     Route: 048
  17. ONDANSETRON [Concomitant]
     Active Substance: ONDANSETRON
     Route: 048
  18. WELLBUTRIN [Concomitant]
     Active Substance: BUPROPION HYDROCHLORIDE
     Dosage: 100 MILLIGRAM, TID
     Route: 048
  19. XANAX [Concomitant]
     Active Substance: ALPRAZOLAM
     Route: 048
  20. GEODON [Concomitant]
     Active Substance: ZIPRASIDONE HYDROCHLORIDE\ZIPRASIDONE MESYLATE
     Dosage: 80 MILLIGRAM, BID
     Route: 048
  21. ETODOLAC [Concomitant]
     Active Substance: ETODOLAC
     Dosage: 400 MILLIGRAM, BID
     Route: 048
  22. BOTOX [Concomitant]
     Active Substance: ONABOTULINUMTOXINA
     Indication: Migraine
  23. PERCOCET [Concomitant]
     Active Substance: ACETAMINOPHEN\OXYCODONE HYDROCHLORIDE
     Route: 048
  24. LAMOTRIGINE [Concomitant]
     Active Substance: LAMOTRIGINE
     Route: 048
  25. Ketocal [Concomitant]
  26. INFLUENZA VIRUS VACCINE [Concomitant]
     Active Substance: INFLUENZA VIRUS VACCINE
  27. PNEUMOCOCCAL VACCINE POLYVALENT [Concomitant]
     Active Substance: PNEUMOCOCCAL VACCINE POLYVALENT

REACTIONS (11)
  - Leukaemia [Recovering/Resolving]
  - Rheumatoid arthritis [Recovering/Resolving]
  - Carpal tunnel decompression [Unknown]
  - Tenoplasty [Unknown]
  - Tenolysis [Unknown]
  - Cholecystectomy [Unknown]
  - Gallbladder operation [Unknown]
  - Spinal operation [Unknown]
  - Post procedural infection [Unknown]
  - Lumbar spinal stenosis [Unknown]
  - Rash [Unknown]

NARRATIVE: CASE EVENT DATE: 20120601
